FAERS Safety Report 8974837 (Version 2)
Quarter: 2013Q1

REPORT INFORMATION
  Report Type: Spontaneous
  Country: US (occurrence: US)
  Receive Date: 20121220
  Receipt Date: 20130318
  Transmission Date: 20140127
  Serious: Yes (Hospitalization, Other)
  Sender: FDA-Public Use
  Company Number: US-BAYER-2012-132480

PATIENT
  Age: 29 Year
  Sex: Female
  Weight: 109 kg

DRUGS (7)
  1. YASMIN [Suspect]
     Indication: CONTRACEPTION
     Dosage: UNK
     Dates: start: 20060601, end: 20070613
  2. METROGEL [Concomitant]
     Dosage: 0.75 %,
     Route: 067
  3. NASONEX [Concomitant]
     Dosage: UNK
     Route: 045
     Dates: start: 20070308
  4. AZITHROMYCIN [Concomitant]
     Dosage: 500 MG, UNK
  5. METFORMIN [Concomitant]
     Indication: POLYCYSTIC OVARIES
     Dosage: 500 MG, UNK
  6. IBUPROFEN [IBUPROFEN] [Concomitant]
     Indication: HEADACHE
     Dosage: UNK
     Dates: start: 2002
  7. IBUPROFEN [IBUPROFEN] [Concomitant]
     Indication: MYALGIA

REACTIONS (11)
  - Pulmonary embolism [None]
  - Cholecystitis chronic [None]
  - Mental disorder [None]
  - Depression [None]
  - Anxiety [None]
  - Fear [None]
  - Pain [None]
  - Dyspnoea [None]
  - Haemoptysis [None]
  - Lung disorder [None]
  - Emotional distress [None]
